FAERS Safety Report 10684698 (Version 1)
Quarter: 2014Q4

REPORT INFORMATION
  Report Type: Spontaneous
  Country: IT (occurrence: IT)
  Receive Date: 20141231
  Receipt Date: 20141231
  Transmission Date: 20150529
  Serious: Yes (Hospitalization, Other)
  Sender: FDA-Public Use
  Company Number: IT-JNJFOC-20141212645

PATIENT

DRUGS (5)
  1. DOXORUBICIN HYDROCHLORIDE. [Suspect]
     Active Substance: DOXORUBICIN HYDROCHLORIDE
     Indication: DIFFUSE LARGE B-CELL LYMPHOMA
     Dosage: UNIT WAS MG/MQ, THE TREATMENT WAS STARTED SINCE 2002
     Route: 042
  2. CYCLOPHOSPHAMIDE. [Suspect]
     Active Substance: CYCLOPHOSPHAMIDE
     Indication: DIFFUSE LARGE B-CELL LYMPHOMA
     Dosage: UNIT WAS MG/MQ, THE TREATMENT WAS STARTED SINCE 2002
     Route: 065
  3. VINCRISTINE [Suspect]
     Active Substance: VINCRISTINE
     Indication: DIFFUSE LARGE B-CELL LYMPHOMA
     Dosage: UNIT WAS MG/MQ, THE TREATMENT WAS STARTED SINCE 2002
     Route: 065
  4. RITUXIMAB [Suspect]
     Active Substance: RITUXIMAB
     Indication: DIFFUSE LARGE B-CELL LYMPHOMA
     Dosage: UNIT WAS MG/MQ, THE TREATMENT WAS STARTED SINCE 2002
     Route: 065
  5. PREDNISONE. [Suspect]
     Active Substance: PREDNISONE
     Indication: DIFFUSE LARGE B-CELL LYMPHOMA
     Dosage: D 1-5 OF EACH 14-DAY COURSES, THE TREATMENT WAS STARTED SINCE 2002
     Route: 065

REACTIONS (4)
  - Neutropenia [Unknown]
  - Supraventricular tachycardia [Unknown]
  - Thrombocytopenia [Unknown]
  - Febrile neutropenia [Unknown]
